FAERS Safety Report 17745329 (Version 1)
Quarter: 2020Q2

REPORT INFORMATION
  Report Type: Spontaneous
  Country: CN (occurrence: CN)
  Receive Date: 20200505
  Receipt Date: 20200505
  Transmission Date: 20200714
  Serious: Yes (Hospitalization, Other)
  Sender: FDA-Public Use
  Company Number: CN-PFIZER INC-2020177403

PATIENT
  Age: 62 Year
  Sex: Male
  Weight: 60 kg

DRUGS (3)
  1. MEPEM [MEROPENEM] [Concomitant]
     Active Substance: MEROPENEM
     Indication: CHRONIC OBSTRUCTIVE PULMONARY DISEASE
     Dosage: 1.5 G, 4X/DAY
     Route: 041
     Dates: start: 20200312, end: 20200319
  2. TYGACIL [Suspect]
     Active Substance: TIGECYCLINE
     Indication: CHRONIC OBSTRUCTIVE PULMONARY DISEASE
     Dosage: 100 MG, 2X/DAY
     Route: 041
     Dates: start: 20200312, end: 20200316
  3. SODIUM CHLORIDE. [Concomitant]
     Active Substance: SODIUM CHLORIDE
     Indication: VEHICLE SOLUTION USE
     Dosage: 100 ML, 2X/DAY
     Route: 041
     Dates: start: 20200312, end: 20200316

REACTIONS (4)
  - Product use issue [Unknown]
  - Deafness [Unknown]
  - Off label use [Unknown]
  - Dermatitis exfoliative [Recovering/Resolving]

NARRATIVE: CASE EVENT DATE: 202003
